FAERS Safety Report 7643110-8 (Version None)
Quarter: 2011Q3

REPORT INFORMATION
  Report Type: 
  Country: None (occurrence: None)
  Receive Date: 20110729
  Receipt Date: 20110720
  Transmission Date: 20111222
  Serious: Yes (Hospitalization, Other)
  Sender: FDA-Public Use
  Company Number: US-ASTRAZENECA-2011SE43459

PATIENT
  Age: 6955 Day
  Sex: Male

DRUGS (15)
  1. SENNA [Concomitant]
     Dosage: II DAILY PRN
     Route: 048
     Dates: start: 20070913
  2. ZANTAC [Concomitant]
     Dates: start: 20050107
  3. TOPROL-XL [Concomitant]
     Route: 048
     Dates: start: 20050107
  4. ALLEGRA [Concomitant]
     Dates: start: 20050107
  5. PROTONIX [Concomitant]
     Route: 048
     Dates: start: 20070824
  6. AVELOX [Concomitant]
     Route: 048
     Dates: start: 20070913
  7. PERCOCET [Concomitant]
     Dosage: 5/325 MG Q 4 HRLY PRN
     Route: 048
     Dates: start: 20070913
  8. SEROQUEL [Suspect]
     Route: 048
     Dates: start: 20050107
  9. LOTENSIN [Concomitant]
     Route: 048
     Dates: start: 20070913
  10. RISPERDAL [Concomitant]
     Route: 048
     Dates: start: 20070824
  11. IBUPROFEN [Concomitant]
     Route: 048
     Dates: start: 20070913
  12. DEPAKOTE [Concomitant]
     Dates: start: 20050107
  13. STRATTERA [Concomitant]
     Dates: start: 20050107
  14. NICOTINE [Concomitant]
     Dates: start: 20070824
  15. AMBIEN [Concomitant]
     Route: 048
     Dates: start: 20070913

REACTIONS (7)
  - BLOOD PRESSURE SYSTOLIC INCREASED [None]
  - PNEUMONIA [None]
  - TRAUMATIC LUNG INJURY [None]
  - TARDIVE DYSKINESIA [None]
  - FALL [None]
  - TACHYCARDIA [None]
  - SPLENIC HAEMATOMA [None]
